FAERS Safety Report 15785404 (Version 2)
Quarter: 2019Q2

REPORT INFORMATION
  Report Type: Spontaneous
  Country: CN (occurrence: CN)
  Receive Date: 20190103
  Receipt Date: 20190522
  Transmission Date: 20190711
  Serious: Yes (Other)
  Sender: FDA-Public Use
  Company Number: CN-ROCHE-2238924

PATIENT
  Age: 43 Year
  Sex: Male

DRUGS (11)
  1. IRINOTECAN [Concomitant]
     Active Substance: IRINOTECAN
     Indication: COLON CANCER METASTATIC
     Dosage: FOR 4 CYCLE
     Route: 065
     Dates: start: 20140829, end: 20141021
  2. FOLINIC ACID [Concomitant]
     Active Substance: LEUCOVORIN
     Indication: COLON CANCER METASTATIC
     Dosage: FOR 4 CYCLE
     Route: 065
     Dates: start: 20140829, end: 20141021
  3. FLUOROURACIL. [Concomitant]
     Active Substance: FLUOROURACIL
     Dosage: FOR 4 CYCLE
     Route: 065
  4. FOLINIC ACID [Concomitant]
     Active Substance: LEUCOVORIN
     Dosage: FOR 4 CYCLE
     Route: 065
     Dates: start: 20141023, end: 20141205
  5. FOLINIC ACID [Concomitant]
     Active Substance: LEUCOVORIN
     Dosage: FOR 4 CYCLE
     Route: 065
  6. FLUOROURACIL. [Concomitant]
     Active Substance: FLUOROURACIL
     Indication: COLON CANCER METASTATIC
     Dosage: FOR 4 CYCLE
     Route: 065
     Dates: start: 20140829, end: 20141021
  7. FLUOROURACIL. [Concomitant]
     Active Substance: FLUOROURACIL
     Dosage: FOR 4 CYCLE
     Route: 065
     Dates: start: 20141023, end: 20141205
  8. AVASTIN [Suspect]
     Active Substance: BEVACIZUMAB
     Indication: COLON CANCER METASTATIC
     Dosage: FOR 4 CYCLE
     Route: 042
     Dates: start: 20140829, end: 20141021
  9. FLUOROURACIL. [Concomitant]
     Active Substance: FLUOROURACIL
     Route: 065
  10. AVASTIN [Suspect]
     Active Substance: BEVACIZUMAB
     Dosage: FOR 4 CYCLE
     Route: 042
     Dates: start: 20141023, end: 20141205
  11. IRINOTECAN [Concomitant]
     Active Substance: IRINOTECAN
     Dosage: FOR 4 CYCLE
     Route: 065
     Dates: start: 20141023, end: 20141205

REACTIONS (1)
  - Bone marrow failure [Unknown]
